FAERS Safety Report 9563993 (Version 2)
Quarter: 2014Q1

REPORT INFORMATION
  Report Type: Report from Study
  Country: US (occurrence: US)
  Receive Date: 20130928
  Receipt Date: 20140305
  Transmission Date: 20141002
  Serious: Yes (Hospitalization)
  Sender: FDA-Public Use
  Company Number: US-ROCHE-1281167

PATIENT
  Age: 59 Year
  Sex: Male

DRUGS (9)
  1. LUCENTIS [Suspect]
     Indication: MACULAR OEDEMA
     Dosage: IN BOTH EYES.MOST RECENT DOSE ON: 10/SEP/2013.
     Route: 050
     Dates: start: 201104
  2. GABAPENTIN [Concomitant]
     Route: 065
  3. HUMALOG [Concomitant]
  4. LANTUS [Concomitant]
  5. REBIF [Concomitant]
     Dosage: 44 MCG/0.5ML PREFILLED SYRINGE
     Route: 065
  6. LISINOPRIL [Concomitant]
     Route: 048
  7. SIMVASTATIN [Concomitant]
     Route: 048
  8. WELLBUTRIN [Concomitant]
     Route: 048
  9. WELLBUTRIN [Concomitant]
     Dosage: 300 MG 24 HR RELEASE
     Route: 065

REACTIONS (6)
  - Hypertension [Unknown]
  - Vision blurred [Unknown]
  - Visual impairment [Unknown]
  - Dizziness [Unknown]
  - Diplopia [Unknown]
  - Vitreous floaters [Unknown]
